FAERS Safety Report 18300974 (Version 1)
Quarter: 2020Q3

REPORT INFORMATION
  Report Type: Spontaneous
  Country: JP (occurrence: JP)
  Receive Date: 20200923
  Receipt Date: 20200923
  Transmission Date: 20201103
  Serious: Yes (Death)
  Sender: FDA-Public Use
  Company Number: JP-ROCHE-2658648

PATIENT
  Age: 88 Year
  Sex: Male

DRUGS (5)
  1. ACTEMRA [Suspect]
     Active Substance: TOCILIZUMAB
     Indication: CYTOKINE RELEASE SYNDROME
  2. CEFTRIAXONE NA [Concomitant]
     Active Substance: CEFTRIAXONE
     Dosage: DOSAGE IS UNCERTAIN.
     Route: 065
  3. ZITHROMAC [Concomitant]
     Active Substance: AZITHROMYCIN DIHYDRATE
  4. PREDNISOLONE. [Concomitant]
     Active Substance: PREDNISOLONE
     Dosage: DOSAGE IS UNCERTAIN.
     Route: 065
     Dates: start: 20200731, end: 20200817
  5. ACTEMRA [Suspect]
     Active Substance: TOCILIZUMAB
     Indication: COVID-19
     Route: 041
     Dates: start: 20200803

REACTIONS (3)
  - COVID-19 [Fatal]
  - Intentional product use issue [Unknown]
  - Off label use [Unknown]
